FAERS Safety Report 7492100-7 (Version None)
Quarter: 2011Q2

REPORT INFORMATION
  Report Type: 
  Country: None (occurrence: None)
  Receive Date: 20110512
  Receipt Date: 20110504
  Transmission Date: 20111010
  Serious: Yes (Other)
  Sender: FDA-Public Use
  Company Number: 2011SP016024

PATIENT
  Age: 64 Year
  Sex: Female

DRUGS (16)
  1. ZYRTEC [Concomitant]
  2. PANTOPRAZOLE [Concomitant]
  3. CHOLESTYRAMINE [Concomitant]
  4. SPIRIVA [Concomitant]
  5. RISPERISONE [Concomitant]
  6. RISPERIDONE [Concomitant]
  7. ALBUTEROL SULFATE AUTOHALER [Concomitant]
  8. GABAPENTINE [Concomitant]
  9. PROPRANOLOL [Concomitant]
  10. VANCOMYCIN HCL [Concomitant]
  11. VITAMIN D [Concomitant]
  12. DONEPEZIL [Concomitant]
  13. REMERON [Suspect]
     Indication: DEPRESSION
     Dosage: 15 MG;QPM;PO
     Route: 048
     Dates: start: 20110309, end: 20110409
  14. LOTEMAX [Concomitant]
  15. BENZTROPINE MESYLATE [Concomitant]
  16. LEVOTHYROXINE SODIUM [Concomitant]

REACTIONS (2)
  - TORTICOLLIS [None]
  - MUSCLE SPASMS [None]
